FAERS Safety Report 9699051 (Version 2)
Quarter: 2013Q4

REPORT INFORMATION
  Report Type: Spontaneous
  Country: US (occurrence: None)
  Receive Date: 20131101
  Receipt Date: 20131105
  Transmission Date: 20140711
  Serious: Yes (Hospitalization)
  Sender: FDA-Public Use
  Company Number: 2013038635

PATIENT
  Age: 80 Year
  Sex: Female

DRUGS (1)
  1. HIZENTRA [Suspect]
     Indication: IMMUNODEFICIENCY
     Dosage: 1X/WEEK
     Dates: start: 20131007

REACTIONS (3)
  - Asthenia [None]
  - Drug dose omission [None]
  - Infection [None]
